FAERS Safety Report 20672170 (Version 1)
Quarter: 2022Q2

REPORT INFORMATION
  Report Type: Spontaneous
  Country: US (occurrence: US)
  Receive Date: 20220405
  Receipt Date: 20220405
  Transmission Date: 20220721
  Serious: No
  Sender: FDA-Public Use
  Company Number: US-TEVA-2022-US-2022821

PATIENT
  Age: 72 Year
  Sex: Male

DRUGS (4)
  1. PREDNISONE [Suspect]
     Active Substance: PREDNISONE
     Indication: Rash
     Dosage: DAY-1
     Dates: start: 20220322
  2. PREDNISONE [Suspect]
     Active Substance: PREDNISONE
     Dosage: DAY-2
     Dates: start: 20220323
  3. PREDNISONE [Suspect]
     Active Substance: PREDNISONE
     Dosage: DAY-3
     Dates: start: 20220324
  4. PREDNISONE [Suspect]
     Active Substance: PREDNISONE
     Dosage: DAY-4
     Dates: start: 20220325

REACTIONS (2)
  - Palpitations [Recovered/Resolved]
  - Product use complaint [Unknown]

NARRATIVE: CASE EVENT DATE: 20220301
